FAERS Safety Report 7922152 (Version 3)
Quarter: 2013Q1

REPORT INFORMATION
  Report Type: Spontaneous
  Country: US (occurrence: US)
  Receive Date: 20110429
  Receipt Date: 20130125
  Transmission Date: 20140127
  Serious: Yes (Hospitalization, Other)
  Sender: FDA-Public Use
  Company Number: US-ASTRAZENECA-2011SE00293

PATIENT
  Age: 89 Year
  Sex: Female

DRUGS (2)
  1. NEXIUM [Suspect]
     Route: 048
  2. TOPROL XL [Suspect]
     Route: 048

REACTIONS (9)
  - Haematoma [Unknown]
  - Pneumonia [Unknown]
  - Pharyngitis streptococcal [Unknown]
  - Addison^s disease [Unknown]
  - Hypertension [Unknown]
  - Bronchitis [Unknown]
  - Macular degeneration [Unknown]
  - Malaise [Unknown]
  - Drug ineffective [Unknown]
